FAERS Safety Report 4496829-4 (Version None)
Quarter: 2004Q4

REPORT INFORMATION
  Report Type: 
  Country: None (occurrence: None)
  Receive Date: 20041109
  Receipt Date: 20041004
  Transmission Date: 20050328
  Serious: Yes (Other)
  Sender: FDA-Public Use
  Company Number: IRMS20425457

PATIENT
  Age: 35 Year
  Sex: Male
  Weight: 70.5 kg

DRUGS (3)
  1. MALARONE [Suspect]
     Indication: MALARIA PROPHYLAXIS
     Route: 048
     Dates: start: 20040925, end: 20041010
  2. ALCOHOL [Suspect]
  3. VACCINE [Concomitant]

REACTIONS (4)
  - ANXIETY [None]
  - DELUSIONAL DISORDER, PERSECUTORY TYPE [None]
  - INSOMNIA [None]
  - MENTAL DISORDER [None]
